FAERS Safety Report 7507147-1 (Version None)
Quarter: 2011Q2

REPORT INFORMATION
  Report Type: 
  Country: None (occurrence: None)
  Receive Date: 20110526
  Receipt Date: 20110518
  Transmission Date: 20111010
  Serious: Yes (Other)
  Sender: FDA-Public Use
  Company Number: GR-AMGEN-GRCSP2011025903

PATIENT
  Sex: Female

DRUGS (1)
  1. PROLIA [Suspect]
     Indication: OSTEOPOROSIS
     Dosage: UNK
     Dates: start: 20110511, end: 20110511

REACTIONS (5)
  - ECZEMA [None]
  - PRURITUS [None]
  - INSOMNIA [None]
  - LYMPHADENOPATHY [None]
  - RASH PAPULAR [None]
